FAERS Safety Report 5573393-X (Version None)
Quarter: 2007Q4

REPORT INFORMATION
  Report Type: 
  Country: None (occurrence: None)
  Receive Date: 20071226
  Receipt Date: 20071218
  Transmission Date: 20080405
  Serious: Yes (Hospitalization, Other)
  Sender: FDA-Public Use
  Company Number: FR-BRISTOL-MYERS SQUIBB COMPANY-14015747

PATIENT
  Age: 35 Year
  Sex: Female

DRUGS (7)
  1. CYCLOPHOSPHAMIDE [Suspect]
     Indication: SYSTEMIC LUPUS ERYTHEMATOSUS
     Route: 042
     Dates: start: 20071120, end: 20071120
  2. UROMITEXAN [Suspect]
     Indication: SYSTEMIC LUPUS ERYTHEMATOSUS
     Dosage: ALSO RECEIVED 600 MG ORALLY,FREQUENCY AS NEEDED ON 20-NOV-2007
     Route: 042
     Dates: start: 20071120, end: 20071120
  3. ZOPHREN [Suspect]
     Indication: SYSTEMIC LUPUS ERYTHEMATOSUS
     Route: 042
     Dates: start: 20071120, end: 20071120
  4. XANAX [Concomitant]
     Route: 048
     Dates: start: 20071120, end: 20071120
  5. RAMIPRIL [Concomitant]
  6. METHOTREXATE [Concomitant]
     Dates: end: 20071106
  7. CORTANCYL [Concomitant]

REACTIONS (4)
  - PALATAL OEDEMA [None]
  - PYREXIA [None]
  - RASH [None]
  - RESPIRATORY DISTRESS [None]
